FAERS Safety Report 6433682-3 (Version None)
Quarter: 2009Q4

REPORT INFORMATION
  Report Type: 
  Country: None (occurrence: None)
  Receive Date: 20091110
  Receipt Date: 20091029
  Transmission Date: 20100525
  Serious: No
  Sender: FDA-Public Use
  Company Number: US-ROCHE-642684

PATIENT

DRUGS (1)
  1. TAMIFLU [Suspect]
     Indication: INFECTION PROPHYLAXIS
     Dosage: ROUTE REPORTED AS CAPSULE
     Route: 064
     Dates: start: 20090701

REACTIONS (2)
  - NO ADVERSE EVENT [None]
  - NORMAL NEWBORN [None]
